FAERS Safety Report 9171494 (Version 1)
Quarter: 2013Q1

REPORT INFORMATION
  Report Type: Report from Study
  Country: CA (occurrence: CA)
  Receive Date: 20130319
  Receipt Date: 20130319
  Transmission Date: 20140127
  Serious: Yes (Other)
  Sender: FDA-Public Use
  Company Number: CA-ROCHE-1201556

PATIENT
  Sex: Female
  Weight: 63.5 kg

DRUGS (15)
  1. RITUXAN [Suspect]
     Indication: GRANULOMATOSIS WITH POLYANGIITIS
     Route: 042
     Dates: start: 20120221
  2. CIPRALEX [Concomitant]
  3. ADALAT XL [Concomitant]
  4. CYMBALTA [Concomitant]
  5. TRIAZIDE [Concomitant]
  6. NEXIUM [Concomitant]
  7. SPIRONOLACTONE [Concomitant]
  8. DOCUSATE [Concomitant]
  9. IMURAN [Concomitant]
  10. PREDNISONE [Concomitant]
  11. FOLIC ACID [Concomitant]
  12. CLONAZEPAM [Concomitant]
  13. ATIVAN [Concomitant]
     Route: 065
  14. NITRAZEPAM [Concomitant]
     Route: 065
  15. FLEXERIL [Concomitant]
     Route: 065

REACTIONS (2)
  - Nephrolithiasis [Not Recovered/Not Resolved]
  - Alopecia [Not Recovered/Not Resolved]
